FAERS Safety Report 5465922-1 (Version None)
Quarter: 2007Q3

REPORT INFORMATION
  Report Type: 
  Country: None (occurrence: None)
  Receive Date: 20070924
  Receipt Date: 20070917
  Transmission Date: 20080115
  Serious: Yes (Other)
  Sender: FDA-Public Use
  Company Number: US-SANOFI-SYNTHELABO-A03200705636

PATIENT
  Age: 56 Year
  Sex: Female

DRUGS (4)
  1. AMBIEN CR [Suspect]
     Indication: INSOMNIA
     Dosage: UNK
     Route: 048
     Dates: start: 20060101
  2. THYROID TAB [Concomitant]
     Dosage: UNK
     Route: 065
  3. NAUSEA MEDICATION [Concomitant]
     Dosage: UNK
     Route: 065
  4. HEART MEDICATION [Concomitant]
     Dosage: UNK
     Route: 065

REACTIONS (3)
  - AMNESIA [None]
  - IMPAIRED DRIVING ABILITY [None]
  - SOMNAMBULISM [None]
